FAERS Safety Report 9523388 (Version 2)
Quarter: 2014Q1

REPORT INFORMATION
  Report Type: Spontaneous
  Country: US (occurrence: US)
  Receive Date: 20130913
  Receipt Date: 20140128
  Transmission Date: 20141002
  Serious: Yes (Hospitalization)
  Sender: FDA-Public Use
  Company Number: US-B.I. PHARMACEUTICALS,INC./RIDGEFIELD-2013-BI-28355BP

PATIENT
  Age: 49 Year
  Sex: Female
  Weight: 165.56 kg

DRUGS (9)
  1. PRADAXA [Suspect]
     Indication: ANTICOAGULANT THERAPY
     Dates: start: 20110216, end: 201109
  2. FISH OIL [Concomitant]
  3. FIBER [Concomitant]
  4. STOOL SOFTENER [Concomitant]
  5. MULTIVITAMIN [Concomitant]
  6. VITAMIN B [Concomitant]
  7. VITAMIN D [Concomitant]
  8. MAGNESIUM [Concomitant]
  9. CALCIUM [Concomitant]

REACTIONS (1)
  - Lower gastrointestinal haemorrhage [Unknown]
